FAERS Safety Report 12497516 (Version 1)
Quarter: 2016Q2

REPORT INFORMATION
  Report Type: Spontaneous
  Country: US (occurrence: US)
  Receive Date: 20160625
  Receipt Date: 20160625
  Transmission Date: 20160815
  Serious: Yes (Other)
  Sender: FDA-Public Use
  Company Number: PHEH2016US015490

PATIENT
  Age: 69 Year
  Sex: Female

DRUGS (1)
  1. VOTRIENT [Suspect]
     Active Substance: PAZOPANIB HYDROCHLORIDE
     Indication: LUNG CANCER METASTATIC
     Dosage: 800 MG, QD
     Route: 048
     Dates: start: 20160526, end: 20160620

REACTIONS (4)
  - Drug ineffective [Unknown]
  - Product use issue [Unknown]
  - Malignant neoplasm progression [Unknown]
  - Platelet count decreased [Unknown]

NARRATIVE: CASE EVENT DATE: 20160526
